FAERS Safety Report 6369967-9 (Version None)
Quarter: 2009Q3

REPORT INFORMATION
  Report Type: 
  Country: None (occurrence: None)
  Receive Date: 20090923
  Receipt Date: 20071212
  Transmission Date: 20100115
  Serious: No
  Sender: FDA-Public Use
  Company Number: US-ASTRAZENECA-2006UW05385

PATIENT
  Age: 602 Month
  Sex: Male
  Weight: 101.2 kg

DRUGS (14)
  1. SEROQUEL [Suspect]
     Route: 048
  2. RISPERDAL [Suspect]
     Dosage: 0.5 MG - 1 MG
     Dates: start: 20000201, end: 20051101
  3. RISPERDAL [Suspect]
     Route: 065
  4. PNEUMOVAX 23 [Concomitant]
     Route: 065
  5. ABILIFY [Concomitant]
     Indication: PSYCHOTIC DISORDER
     Dosage: 5-10 MG DAILY
     Route: 048
  6. ZOLOFT [Concomitant]
     Indication: ABNORMAL BEHAVIOUR
     Dosage: STREBGTH: 50-100 MG, DOSE: 100 MG DAILY
     Route: 065
  7. CELEXA [Concomitant]
     Route: 048
  8. MEVACOR [Concomitant]
     Route: 048
  9. MUPIROCIN [Concomitant]
     Route: 065
  10. OMNICEF [Concomitant]
     Route: 065
  11. ATARAX [Concomitant]
     Dosage: EVERY 4 HRS AS REQIURED
     Route: 048
  12. NYSTATIN [Concomitant]
     Route: 061
  13. GLUCOPHAGE [Concomitant]
     Route: 048
  14. L-LYSINE [Concomitant]
     Route: 048

REACTIONS (2)
  - ABSCESS LIMB [None]
  - DIABETES MELLITUS [None]
